FAERS Safety Report 8075350-0 (Version None)
Quarter: 2012Q1

REPORT INFORMATION
  Report Type: 
  Country: None (occurrence: None)
  Receive Date: 20120127
  Receipt Date: 20120119
  Transmission Date: 20120608
  Serious: Yes (Hospitalization)
  Sender: FDA-Public Use
  Company Number: US-BAYER-2011-109350

PATIENT
  Age: 25 Year
  Sex: Female
  Weight: 58.957 kg

DRUGS (6)
  1. METRONIDAZOLE [Concomitant]
     Indication: VAGINAL INFECTION
     Dosage: 500 MG, BID
     Route: 048
     Dates: start: 20100111, end: 20100118
  2. YAZ [Suspect]
     Dosage: UNK
     Dates: start: 20100120, end: 20100320
  3. AZITHROMYCIN [Concomitant]
     Indication: ANTIBIOTIC PROPHYLAXIS
     Dosage: UNK
     Route: 048
     Dates: end: 20100111
  4. MIRENA [Concomitant]
     Dosage: UNK
     Dates: end: 20100127
  5. ALEVE (CAPLET) [Concomitant]
     Route: 048
  6. NAPROXEN [Concomitant]
     Indication: PAIN
     Route: 048

REACTIONS (2)
  - MENTAL DISORDER [None]
  - PULMONARY EMBOLISM [None]
